FAERS Safety Report 15463611 (Version 1)
Quarter: 2018Q4

REPORT INFORMATION
  Report Type: Spontaneous
  Country: US (occurrence: US)
  Receive Date: 20181001
  Receipt Date: 20181001
  Transmission Date: 20190204
  Serious: No
  Sender: FDA-Public Use
  Company Number: None

PATIENT
  Age: 71 Year
  Sex: Female
  Weight: 90.72 kg

DRUGS (17)
  1. VITAMIN D [Concomitant]
     Active Substance: CHOLECALCIFEROL
  2. NOVOLOG [Concomitant]
     Active Substance: INSULIN ASPART
  3. ACYCLOVIR. [Concomitant]
     Active Substance: ACYCLOVIR
  4. CHLORTHALIDONE. [Concomitant]
     Active Substance: CHLORTHALIDONE
  5. LATANOPROST. [Concomitant]
     Active Substance: LATANOPROST
  6. LANTUS [Concomitant]
     Active Substance: INSULIN GLARGINE
  7. METOPROLOL. [Concomitant]
     Active Substance: METOPROLOL
  8. PROLIA [Suspect]
     Active Substance: DENOSUMAB
     Indication: OSTEOPOROSIS
     Dosage: ?          OTHER FREQUENCY:EVERY 6 MOS;?
     Dates: start: 20180719
  9. LIPITOR [Concomitant]
     Active Substance: ATORVASTATIN CALCIUM
  10. PREDNISONE. [Concomitant]
     Active Substance: PREDNISONE
  11. OMEPRAZOLE. [Concomitant]
     Active Substance: OMEPRAZOLE
  12. COMBIGAN [Concomitant]
     Active Substance: BRIMONIDINE TARTRATE\TIMOLOL MALEATE
  13. LEVOTHYROXINE. [Concomitant]
     Active Substance: LEVOTHYROXINE
  14. LOSARTAN. [Concomitant]
     Active Substance: LOSARTAN
  15. ENVARSIS [Concomitant]
  16. AMLODIPINE [Concomitant]
     Active Substance: AMLODIPINE BESYLATE
  17. ASA [Concomitant]
     Active Substance: ASPIRIN

REACTIONS (11)
  - Back pain [None]
  - Musculoskeletal stiffness [None]
  - Burning sensation [None]
  - Product advertising issue [None]
  - Bone pain [None]
  - Initial insomnia [None]
  - Myalgia [None]
  - Product complaint [None]
  - Gait inability [None]
  - Impaired quality of life [None]
  - Arthralgia [None]

NARRATIVE: CASE EVENT DATE: 20180719
